FAERS Safety Report 4967784-5 (Version None)
Quarter: 2006Q2

REPORT INFORMATION
  Report Type: 
  Country: None (occurrence: None)
  Receive Date: 20060404
  Receipt Date: 20060327
  Transmission Date: 20061013
  Serious: Yes (Hospitalization)
  Sender: FDA-Public Use
  Company Number: GXKR2006DE01685

PATIENT
  Age: 89 Year
  Sex: Female

DRUGS (2)
  1. GABAPENTIN [Suspect]
     Dosage: SEE IMAGE
     Route: 048
     Dates: start: 20060315, end: 20060320
  2. GABAPENTIN [Suspect]
     Dosage: SEE IMAGE
     Route: 048
     Dates: start: 20060227, end: 20060324

REACTIONS (2)
  - DEPRESSED LEVEL OF CONSCIOUSNESS [None]
  - HYPONATRAEMIA [None]
